FAERS Safety Report 5333455-9 (Version None)
Quarter: 2007Q2

REPORT INFORMATION
  Report Type: 
  Country: None (occurrence: None)
  Receive Date: 20070522
  Receipt Date: 20070522
  Transmission Date: 20071010
  Serious: Yes (Hospitalization, Other)
  Sender: FDA-Public Use
  Company Number: None

PATIENT
  Sex: Female
  Weight: 68.4932 kg

DRUGS (1)
  1. BACTRIM DS [Suspect]
     Indication: ACUTE SINUSITIS
     Dosage: BACTRIM DS BID PO
     Route: 048
     Dates: start: 20070115, end: 20070118

REACTIONS (3)
  - DIALYSIS [None]
  - NEPHRITIS INTERSTITIAL [None]
  - RENAL FAILURE CHRONIC [None]
